FAERS Safety Report 6930945-X (Version None)
Quarter: 2010Q3

REPORT INFORMATION
  Report Type: 
  Country: None (occurrence: None)
  Receive Date: 20100818
  Receipt Date: 20100812
  Transmission Date: 20110219
  Serious: Yes (Hospitalization, Disabling, Other)
  Sender: FDA-Public Use
  Company Number: CH-WYE-G06415610

PATIENT
  Sex: Female

DRUGS (2)
  1. EFFEXOR [Suspect]
     Dosage: DOSE AND FREQUENCY WERE UNKNOWN
     Dates: start: 19980101
  2. CORTISONE ACETATE [Concomitant]
     Dosage: 10 YEARS AGO, DOSE AND FREQUENCY UNKNOWN

REACTIONS (8)
  - DEPRESSION [None]
  - IMPAIRED WORK ABILITY [None]
  - MALAISE [None]
  - NONSPECIFIC REACTION [None]
  - PNEUMONIA [None]
  - PNEUMOTHORAX [None]
  - RESPIRATORY DISORDER [None]
  - WEIGHT INCREASED [None]
